FAERS Safety Report 4886413-2 (Version None)
Quarter: 2006Q1

REPORT INFORMATION
  Report Type: 
  Country: None (occurrence: None)
  Receive Date: 20060120
  Receipt Date: 20051230
  Transmission Date: 20060701
  Serious: Yes (Death, Hospitalization)
  Sender: FDA-Public Use
  Company Number: US-MERCK-0601USA00215

PATIENT
  Age: 68 Year
  Sex: Male
  Weight: 113 kg

DRUGS (1)
  1. VIOXX [Suspect]
     Indication: CHEST PAIN
     Route: 048
     Dates: start: 20000820

REACTIONS (17)
  - ACUTE PULMONARY OEDEMA [None]
  - ASPIRATION [None]
  - ATRIAL FIBRILLATION [None]
  - CATARACT [None]
  - CELLULITIS [None]
  - CEREBELLAR HAEMORRHAGE [None]
  - CORONARY ARTERY DISEASE [None]
  - DIZZINESS [None]
  - HEADACHE [None]
  - HYPERTENSION [None]
  - IRON DEFICIENCY ANAEMIA [None]
  - MYOCARDIAL INFARCTION [None]
  - NEUROPATHY [None]
  - OEDEMA PERIPHERAL [None]
  - PULMONARY HYPERTENSION [None]
  - RENAL FAILURE [None]
  - VENTRICULAR DYSFUNCTION [None]
